FAERS Safety Report 11168481 (Version 3)
Quarter: 2015Q3

REPORT INFORMATION
  Report Type: Report from Study
  Country: US (occurrence: US)
  Receive Date: 20150605
  Receipt Date: 20150727
  Transmission Date: 20151125
  Serious: Yes (Death, Hospitalization)
  Sender: FDA-Public Use
  Company Number: US-VERTEX PHARMACEUTICALS-2015-002394

PATIENT
  Age: 15 Year
  Sex: Male

DRUGS (6)
  1. TOBI [Concomitant]
     Active Substance: TOBRAMYCIN
  2. CREON [Concomitant]
     Active Substance: PANCRELIPASE AMYLASE\PANCRELIPASE LIPASE\PANCRELIPASE PROTEASE
  3. KALYDECO [Suspect]
     Active Substance: IVACAFTOR
     Indication: CYSTIC FIBROSIS
     Dosage: 150 MG, BID
     Route: 048
     Dates: start: 20120313
  4. INSULIN [Concomitant]
     Active Substance: INSULIN NOS
  5. CAYSTON [Concomitant]
     Active Substance: AZTREONAM
  6. ANTIBIOTICS [Suspect]
     Active Substance: UNSPECIFIED INGREDIENT
     Route: 065

REACTIONS (4)
  - Pyrexia [Unknown]
  - Respiratory failure [Fatal]
  - Oxygen saturation decreased [Fatal]
  - Abdominal pain [Unknown]

NARRATIVE: CASE EVENT DATE: 20150621
